FAERS Safety Report 8818138 (Version 1)
Quarter: 2012Q4

REPORT INFORMATION
  Report Type: 
  Country: FR (occurrence: FR)
  Receive Date: 20121001
  Receipt Date: 20121001
  Transmission Date: 20130627
  Serious: Yes (Hospitalization, Other)
  Sender: FDA-Public Use
  Company Number: FR-FRI-1000038916

PATIENT
  Age: 67 Year
  Sex: Female

DRUGS (7)
  1. NEBIVOLOL [Suspect]
     Dosage: 5 mg
  2. VILDAGLIPTIN/METFORMIN [Suspect]
     Dosage: 50/1000 mg twice daily
     Dates: start: 201106
  3. METFORMIN [Concomitant]
     Dosage: 3300 mg
  4. METFORMIN [Concomitant]
     Dosage: 2000 mg
     Dates: start: 201106
  5. CANDESARTAN/HYDROCHLOROTHIAZIDE [Concomitant]
     Dosage: 15/12.5 mg daily
  6. LERCANIDIPINE [Concomitant]
     Dosage: 20 mg
  7. BUDESONIDE/FORMOTEROL [Concomitant]
     Dosage: 400mug/12mg

REACTIONS (7)
  - Drug reaction with eosinophilia and systemic symptoms [Recovering/Resolving]
  - Pruritus [Recovering/Resolving]
  - Dysphagia [Recovering/Resolving]
  - Anuria [Recovering/Resolving]
  - Toxic epidermal necrolysis [Recovering/Resolving]
  - Lactic acidosis [Recovering/Resolving]
  - Multi-organ failure [Recovering/Resolving]
